FAERS Safety Report 7915686 (Version 6)
Quarter: 2014Q2

REPORT INFORMATION
  Report Type: Report from Study
  Country: US (occurrence: US)
  Receive Date: 20110426
  Receipt Date: 20140612
  Transmission Date: 20141212
  Serious: Yes (Death, Other)
  Sender: FDA-Public Use
  Company Number: US-BAYER-2010-005562

PATIENT
  Age: 78 Year
  Sex: Female

DRUGS (8)
  1. NEXAVAR EDUCATION COMPAIGN IN US [Suspect]
     Indication: RENAL CELL CARCINOMA
     Dosage: DAILY DOSE 400 MG
     Dates: start: 20101201
  2. NEXAVAR EDUCATION COMPAIGN IN US [Suspect]
     Indication: RENAL CELL CARCINOMA
     Dosage: 400 MG, BID
     Dates: start: 20110301
  3. NEXAVAR EDUCATION COMPAIGN IN US [Suspect]
     Indication: RENAL CELL CARCINOMA
     Dosage: 400 MG, QD
     Route: 048
     Dates: start: 201210
  4. NEXAVAR EDUCATION COMPAIGN IN US [Suspect]
     Indication: RENAL CELL CARCINOMA
     Dosage: DOSE DESREASED 400 MG DAILY
     Route: 048
     Dates: start: 201301, end: 20140525
  5. ZYRTEC [Concomitant]
     Dosage: 10 MG
     Route: 048
  6. LEVOTHROID [Concomitant]
     Dosage: 125 MCG
     Route: 048
  7. SPIRIVA [Concomitant]
     Route: 055
  8. BIOTENE [Concomitant]
     Route: 048

REACTIONS (18)
  - Thrombosis [Recovering/Resolving]
  - Glossodynia [Not Recovered/Not Resolved]
  - Fatigue [Not Recovered/Not Resolved]
  - Dry mouth [Recovering/Resolving]
  - Weight decreased [Not Recovered/Not Resolved]
  - Aphagia [Not Recovered/Not Resolved]
  - Diarrhoea [Recovering/Resolving]
  - Blood pressure increased [Recovering/Resolving]
  - Pain in extremity [Not Recovered/Not Resolved]
  - Rash [Not Recovered/Not Resolved]
  - Erythema [Recovered/Resolved]
  - Sensation of foreign body [Not Recovered/Not Resolved]
  - Pruritus [Not Recovered/Not Resolved]
  - Candida infection [Recovering/Resolving]
  - Dysphonia [Not Recovered/Not Resolved]
  - Alopecia [Not Recovered/Not Resolved]
  - Constipation [Recovering/Resolving]
  - Death [Fatal]
